FAERS Safety Report 6120144-6 (Version None)
Quarter: 2009Q1

REPORT INFORMATION
  Report Type: 
  Country: None (occurrence: None)
  Receive Date: 20090312
  Receipt Date: 20090309
  Transmission Date: 20090719
  Serious: Yes (Other)
  Sender: FDA-Public Use
  Company Number: JPI-P-006436

PATIENT
  Age: 29 Year
  Sex: Female

DRUGS (10)
  1. XYREM [Suspect]
     Indication: NARCOLEPSY
     Dosage: 6 GM (3 GM, 2 IN 1 D), ORAL; 9 MG (4.5 GM, 2 IN 1 D), ORAL
     Route: 048
     Dates: start: 20060226, end: 20070601
  2. XYREM [Suspect]
     Indication: NARCOLEPSY
     Dosage: 6 GM (3 GM, 2 IN 1 D), ORAL; 9 MG (4.5 GM, 2 IN 1 D), ORAL
     Route: 048
     Dates: start: 20070901, end: 20081030
  3. XYREM [Suspect]
     Indication: NARCOLEPSY
     Dosage: 6 GM (3 GM, 2 IN 1 D), ORAL; 9 MG (4.5 GM, 2 IN 1 D), ORAL
     Route: 048
     Dates: start: 20081031, end: 20081130
  4. XYREM [Suspect]
     Indication: NARCOLEPSY
     Dosage: 6 GM (3 GM, 2 IN 1 D), ORAL; 9 MG (4.5 GM, 2 IN 1 D), ORAL
     Route: 048
     Dates: start: 20081201, end: 20090305
  5. TRAZODONE HYDROCHLORIDE [Concomitant]
  6. MODAFINIL [Concomitant]
  7. CETIRIZINE [Concomitant]
  8. ZOLPIDEM [Concomitant]
  9. PROMETHAZINE [Concomitant]
  10. ESCITALOPRAM [Concomitant]

REACTIONS (4)
  - CONTUSION [None]
  - FALL [None]
  - RADIUS FRACTURE [None]
  - UPPER LIMB FRACTURE [None]
